FAERS Safety Report 17970094 (Version 1)
Quarter: 2020Q3

REPORT INFORMATION
  Report Type: Spontaneous
  Country: FR (occurrence: FR)
  Receive Date: 20200701
  Receipt Date: 20200701
  Transmission Date: 20201103
  Serious: Yes (Life-Threatening, Hospitalization)
  Sender: FDA-Public Use
  Company Number: NVSC2020FR183071

PATIENT
  Age: 13 Year
  Sex: Female
  Weight: 34 kg

DRUGS (2)
  1. ACIDE FOLIQUE ARROW [Concomitant]
     Active Substance: FOLIC ACID
     Indication: THALASSAEMIA
     Dosage: 1 DF, QD
     Route: 048
     Dates: start: 20080101
  2. EXJADE [Suspect]
     Active Substance: DEFERASIROX
     Indication: IRON OVERLOAD
     Dosage: 990 MG, QD
     Route: 048
     Dates: start: 20190918, end: 20200512

REACTIONS (11)
  - Hepatocellular injury [Recovering/Resolving]
  - Asthenia [Recovering/Resolving]
  - Abdominal pain [Recovering/Resolving]
  - Proteinuria [Recovering/Resolving]
  - Peritonitis [Recovering/Resolving]
  - Blood urea increased [Recovering/Resolving]
  - Lipase increased [Recovering/Resolving]
  - Duodenal ulcer perforation [Recovering/Resolving]
  - Decreased appetite [Recovering/Resolving]
  - Hyperbilirubinaemia [Recovering/Resolving]
  - Vomiting [Recovering/Resolving]

NARRATIVE: CASE EVENT DATE: 202004
